FAERS Safety Report 9048600 (Version 2)
Quarter: 2013Q2

REPORT INFORMATION
  Report Type: Spontaneous
  Country: US (occurrence: None)
  Receive Date: 20120525
  Receipt Date: 20120827
  Transmission Date: 20140414
  Serious: Yes (Other)
  Sender: FDA-Public Use
  Company Number: 345293

PATIENT
  Age: 60 Year
  Sex: Female

DRUGS (1)
  1. VICTOZA (LIRAGLUTIDE) SOLUTION FOR INJECTION, 6 MG/ML [Suspect]
     Indication: TYPE 2 DIABETES MELLITUS
     Route: 058
     Dates: start: 20120204

REACTIONS (6)
  - Blood calcium increased [None]
  - Abdominal discomfort [None]
  - Decreased appetite [None]
  - Nausea [None]
  - Constipation [None]
  - Injection site haematoma [None]
